FAERS Safety Report 7199011-5 (Version None)
Quarter: 2010Q4

REPORT INFORMATION
  Report Type: 
  Country: None (occurrence: None)
  Receive Date: 20101228
  Receipt Date: 20101215
  Transmission Date: 20110411
  Serious: Yes (Hospitalization)
  Sender: FDA-Public Use
  Company Number: US-BIOGENIDEC-2010BI017031

PATIENT
  Age: 42 Year
  Sex: Female

DRUGS (8)
  1. TYSABRI [Suspect]
     Indication: MULTIPLE SCLEROSIS
     Route: 042
     Dates: start: 20071219
  2. NEURONTIN [Concomitant]
     Indication: MUSCLE SPASTICITY
  3. NEURONTIN [Concomitant]
  4. EFFEXOR XR [Concomitant]
     Indication: DEPRESSION
  5. ADDERALL XR 10 [Concomitant]
     Indication: FATIGUE
  6. LEVOTHYROXINE [Concomitant]
     Indication: HYPOTHYROIDISM
  7. VICODIN [Concomitant]
     Indication: PAIN
  8. TOPAMAX [Concomitant]
     Route: 048

REACTIONS (4)
  - HAEMATURIA [None]
  - HEADACHE [None]
  - HYPOKALAEMIA [None]
  - MULTIPLE SCLEROSIS RELAPSE [None]
